FAERS Safety Report 25321185 (Version 2)
Quarter: 2025Q3

REPORT INFORMATION
  Report Type: Report from Study
  Country: US (occurrence: US)
  Receive Date: 20250515
  Receipt Date: 20250916
  Transmission Date: 20251021
  Serious: Yes (Other)
  Sender: ABBVIE
  Company Number: US-ABBVIE-6274249

PATIENT
  Age: 71 Year
  Sex: Male

DRUGS (3)
  1. SKYRIZI [Suspect]
     Active Substance: RISANKIZUMAB-RZAA
     Indication: Crohn^s disease
     Route: 042
     Dates: start: 202412
  2. SKYRIZI [Suspect]
     Active Substance: RISANKIZUMAB-RZAA
     Indication: Crohn^s disease
     Route: 042
     Dates: start: 20241004
  3. SKYRIZI [Suspect]
     Active Substance: RISANKIZUMAB-RZAA
     Indication: Crohn^s disease
     Route: 042
     Dates: start: 202411

REACTIONS (11)
  - Hip surgery [Recovering/Resolving]
  - Abdominal distension [Recovering/Resolving]
  - Crohn^s disease [Not Recovered/Not Resolved]
  - Anaemia [Unknown]
  - Bursitis [Recovered/Resolved]
  - Gastrointestinal sounds abnormal [Unknown]
  - Blood iron abnormal [Unknown]
  - Serum ferritin increased [Recovering/Resolving]
  - Procedural pain [Unknown]
  - Discomfort [Unknown]
  - Therapeutic product effect incomplete [Unknown]

NARRATIVE: CASE EVENT DATE: 20250407
